FAERS Safety Report 5384922-3 (Version None)
Quarter: 2007Q3

REPORT INFORMATION
  Report Type: 
  Country: None (occurrence: None)
  Receive Date: 20070709
  Receipt Date: 20070622
  Transmission Date: 20080115
  Serious: Yes (Other)
  Sender: FDA-Public Use
  Company Number: 07-001375

PATIENT
  Sex: Male

DRUGS (8)
  1. DURICEF [Suspect]
     Indication: CYST
     Dosage: UNK, UNK, ORAL
     Route: 048
  2. TOPROL-XL [Concomitant]
  3. FINASTERIDE [Concomitant]
  4. AMBIEN [Concomitant]
  5. PERCOCET [Concomitant]
  6. XANAX [Concomitant]
  7. ATIVAN [Concomitant]
  8. GLUCOSAMINE W/METHYLSULFONYLMETHANE [Concomitant]

REACTIONS (5)
  - DIARRHOEA [None]
  - DRUG INEFFECTIVE [None]
  - NAUSEA [None]
  - RECTAL ABSCESS [None]
  - SEPSIS [None]
